FAERS Safety Report 7321195-6 (Version None)
Quarter: 2011Q1

REPORT INFORMATION
  Report Type: 
  Country: None (occurrence: None)
  Receive Date: 20110228
  Receipt Date: 20110218
  Transmission Date: 20110831
  Serious: Yes (Other)
  Sender: FDA-Public Use
  Company Number: US-SANOFI-AVENTIS-2011SA008841

PATIENT
  Age: 62 Year
  Sex: Female

DRUGS (7)
  1. METFORMIN [Concomitant]
  2. VALSARTAN [Concomitant]
  3. SOLOSTAR [Suspect]
     Indication: TYPE 2 DIABETES MELLITUS
  4. LANTUS [Suspect]
     Indication: TYPE 2 DIABETES MELLITUS
     Dosage: DOSE:36 UNIT(S)
     Route: 058
  5. ASPIRIN [Concomitant]
  6. SIMVASTATIN [Concomitant]
  7. PROZAC [Concomitant]

REACTIONS (1)
  - KNEE ARTHROPLASTY [None]
